FAERS Safety Report 12826652 (Version 1)
Quarter: 2016Q4

REPORT INFORMATION
  Report Type: Spontaneous
  Country: US (occurrence: US)
  Receive Date: 20161007
  Receipt Date: 20161007
  Transmission Date: 20170207
  Serious: No
  Sender: FDA-Public Use
  Company Number: US-WATSON-2016-15115

PATIENT
  Age: 67 Year
  Sex: Male
  Weight: 136.5 kg

DRUGS (1)
  1. FENTANYL-100 (WATSON LABORATORIES) [Suspect]
     Active Substance: FENTANYL
     Indication: PAIN
     Dosage: 2 PATCHES CHANGED DAILY
     Route: 062
     Dates: start: 20090502, end: 20090709

REACTIONS (4)
  - Anxiety [Recovered/Resolved]
  - Withdrawal syndrome [Recovered/Resolved]
  - Pain [Recovered/Resolved]
  - Flight of ideas [Recovered/Resolved]

NARRATIVE: CASE EVENT DATE: 20090728
